FAERS Safety Report 10211053 (Version 1)
Quarter: 2014Q2

REPORT INFORMATION
  Report Type: Spontaneous
  Country: US (occurrence: None)
  Receive Date: 20140528
  Receipt Date: 20140528
  Transmission Date: 20141212
  Serious: Yes (Hospitalization)
  Sender: FDA-Public Use
  Company Number: UTC-048375

PATIENT
  Age: 30 Year
  Sex: Female
  Weight: 101.2 kg

DRUGS (2)
  1. REMODULIN [Suspect]
     Indication: PULMONARY ARTERIAL HYPERTENSION
     Route: 041
     Dates: start: 20110819
  2. ADCIRCA (TADALAFIL) [Concomitant]

REACTIONS (1)
  - Gastrointestinal disorder [None]
